FAERS Safety Report 12563633 (Version 1)
Quarter: 2016Q3

REPORT INFORMATION
  Report Type: Spontaneous
  Country: FR (occurrence: FR)
  Receive Date: 20160715
  Receipt Date: 20160715
  Transmission Date: 20161109
  Serious: Yes (Hospitalization)
  Sender: FDA-Public Use
  Company Number: PHHY2016FR095375

PATIENT
  Age: 72 Year
  Sex: Female

DRUGS (6)
  1. AVASTIN [Suspect]
     Active Substance: BEVACIZUMAB
     Indication: COLORECTAL CANCER METASTATIC
     Dosage: 550 MG, QD
     Route: 042
     Dates: start: 20160608, end: 20160608
  2. ZOPHREN [Suspect]
     Active Substance: ONDANSETRON
     Indication: PREMEDICATION
     Dosage: 8 MG, QD
     Route: 042
     Dates: start: 20160608, end: 20160608
  3. IRINOTECAN HOSPIRA [Suspect]
     Active Substance: IRINOTECAN
     Indication: COLORECTAL CANCER METASTATIC
     Dosage: 29 MG, QD
     Route: 042
     Dates: start: 20160608, end: 20160608
  4. CALCIUM FOLINATE [Suspect]
     Active Substance: LEUCOVORIN CALCIUM
     Indication: COLORECTAL CANCER METASTATIC
     Dosage: 80 MG, QD
     Route: 042
     Dates: start: 20160608, end: 20160608
  5. SOLU-MEDROL [Suspect]
     Active Substance: METHYLPREDNISOLONE SODIUM SUCCINATE
     Indication: PREMEDICATION
     Dosage: 60 MG, QD
     Route: 042
     Dates: start: 20160608, end: 20160608
  6. ATROPINE. [Suspect]
     Active Substance: ATROPINE
     Indication: PRODUCT USED FOR UNKNOWN INDICATION
     Dosage: 0.25 MG, QD
     Route: 042
     Dates: start: 20160608, end: 20160608

REACTIONS (2)
  - Larynx irritation [Recovered/Resolved]
  - Cough [Recovered/Resolved]

NARRATIVE: CASE EVENT DATE: 20160608
